FAERS Safety Report 6934935-2 (Version None)
Quarter: 2010Q3

REPORT INFORMATION
  Report Type: 
  Country: None (occurrence: None)
  Receive Date: 20100821
  Receipt Date: 20100811
  Transmission Date: 20110219
  Serious: Yes (Death, Other)
  Sender: FDA-Public Use
  Company Number: PHHY2010US52846

PATIENT
  Age: 16 Day
  Sex: Male

DRUGS (1)
  1. OCTREOTIDE ACETATE [Suspect]
     Indication: HYPERINSULINAEMIA
     Route: 058

REACTIONS (2)
  - LAPAROTOMY [None]
  - NECROTISING COLITIS [None]
